FAERS Safety Report 10264424 (Version 3)
Quarter: 2015Q2

REPORT INFORMATION
  Report Type: Spontaneous
  Country: US (occurrence: US)
  Receive Date: 20140627
  Receipt Date: 20150427
  Transmission Date: 20150821
  Serious: Yes (Other)
  Sender: FDA-Public Use
  Company Number: US-SA-2014SA081064

PATIENT
  Age: 50 Year
  Sex: Female

DRUGS (8)
  1. LANTUS SOLOSTAR [Suspect]
     Active Substance: INSULIN GLARGINE
     Indication: TYPE 2 DIABETES MELLITUS
     Route: 065
  2. LANTUS SOLOSTAR [Suspect]
     Active Substance: INSULIN GLARGINE
     Indication: TYPE 2 DIABETES MELLITUS
     Route: 065
     Dates: start: 2009
  3. SOLOSTAR [Concomitant]
     Active Substance: DEVICE
     Dates: start: 2009
  4. SOLOSTAR [Concomitant]
     Active Substance: DEVICE
  5. LANTUS SOLOSTAR [Suspect]
     Active Substance: INSULIN GLARGINE
     Indication: TYPE 2 DIABETES MELLITUS
     Route: 065
     Dates: start: 2009
  6. LANTUS SOLOSTAR [Suspect]
     Active Substance: INSULIN GLARGINE
     Indication: TYPE 2 DIABETES MELLITUS
     Route: 065
  7. HUMULIN NOS [Concomitant]
     Active Substance: INSULIN HUMAN
  8. LANTUS SOLOSTAR [Suspect]
     Active Substance: INSULIN GLARGINE
     Indication: TYPE 2 DIABETES MELLITUS
     Route: 065
     Dates: start: 2009

REACTIONS (7)
  - Retinal detachment [Unknown]
  - Blindness [Unknown]
  - Diabetic neuropathy [Unknown]
  - Diabetic retinopathy [Unknown]
  - Surgery [Unknown]
  - Visual acuity reduced [Unknown]
  - Injury associated with device [Unknown]

NARRATIVE: CASE EVENT DATE: 2012
